FAERS Safety Report 16288288 (Version 1)
Quarter: 2019Q2

REPORT INFORMATION
  Report Type: Other
  Country: SE (occurrence: SE)
  Receive Date: 20190508
  Receipt Date: 20190508
  Transmission Date: 20190711
  Serious: Yes (Hospitalization)
  Sender: FDA-Public Use
  Company Number: SE-CELLTRION INC.-2019SE020798

PATIENT

DRUGS (1)
  1. REMSIMA [Suspect]
     Active Substance: INFLIXIMAB
     Indication: SPONDYLITIS
     Dosage: DOSERING 300MG
     Route: 042
     Dates: start: 20190318

REACTIONS (4)
  - Myopathy [Recovered/Resolved]
  - Product use in unapproved indication [Unknown]
  - Pain [Recovered/Resolved]
  - Tachycardia [Recovered/Resolved]

NARRATIVE: CASE EVENT DATE: 20190326
